FAERS Safety Report 17764140 (Version 1)
Quarter: 2020Q2

REPORT INFORMATION
  Report Type: Spontaneous
  Country: NL (occurrence: NL)
  Receive Date: 20200511
  Receipt Date: 20200511
  Transmission Date: 20200714
  Serious: Yes (Other)
  Sender: FDA-Public Use
  Company Number: NL-SUN PHARMACEUTICAL INDUSTRIES LTD-2020RR-246449

PATIENT
  Age: 73 Year
  Sex: Male
  Weight: 75 kg

DRUGS (2)
  1. TAMSULOSIN [Suspect]
     Active Substance: TAMSULOSIN
     Indication: MICTURITION DISORDER
     Dosage: 1 X PER DAG
     Route: 065
     Dates: start: 20200327, end: 20200329
  2. MACROGOL EN ELECTR RP POEDER V DRANK IN SACH 13,7GMACROGOL/... [Concomitant]
     Indication: PRODUCT USED FOR UNKNOWN INDICATION
     Dosage: MACROGOL 13,7
     Route: 065

REACTIONS (6)
  - Seizure [Unknown]
  - Pain in jaw [Recovering/Resolving]
  - Dyskinesia [Unknown]
  - Tongue spasm [Unknown]
  - Dizziness [Unknown]
  - Facial pain [Recovering/Resolving]

NARRATIVE: CASE EVENT DATE: 20200329
